FAERS Safety Report 8051542-1 (Version None)
Quarter: 2012Q1

REPORT INFORMATION
  Report Type: 
  Country: None (occurrence: None)
  Receive Date: 20120117
  Receipt Date: 20120112
  Transmission Date: 20120608
  Serious: Yes (Other)
  Sender: FDA-Public Use
  Company Number: GR-AMGEN-GRCSP2011059210

PATIENT
  Sex: Female

DRUGS (3)
  1. PROLIA [Suspect]
     Indication: OSTEOPOROSIS POSTMENOPAUSAL
     Dosage: UNK UNK, Q6MO
     Dates: start: 20110401
  2. ONEALPHA [Concomitant]
     Dosage: UNK
     Dates: start: 20110401
  3. PROLIA [Suspect]
     Dosage: 60 MG, UNK
     Dates: start: 20111201, end: 20111201

REACTIONS (2)
  - RETINAL DETACHMENT [None]
  - CHOLECYSTECTOMY [None]
